FAERS Safety Report 24056136 (Version 2)
Quarter: 2024Q3

REPORT INFORMATION
  Report Type: Spontaneous
  Country: US (occurrence: US)
  Receive Date: 20240705
  Receipt Date: 20240906
  Transmission Date: 20241017
  Serious: No
  Sender: AMGEN
  Company Number: US-AMGEN-USASP2024129267

PATIENT
  Age: 65 Year
  Sex: Female

DRUGS (6)
  1. AMJEVITA [Suspect]
     Active Substance: ADALIMUMAB-ATTO
     Indication: Product used for unknown indication
     Dosage: 40 MILLIGRAM/0.4ML, Q2WK
     Route: 065
     Dates: start: 2024
  2. AMJEVITA [Suspect]
     Active Substance: ADALIMUMAB-ATTO
     Dosage: 40 MILLIGRAM/0.8ML, Q2WK
     Route: 065
  3. AMJEVITA [Suspect]
     Active Substance: ADALIMUMAB-ATTO
     Dosage: 40 MILLIGRAM/0.8ML, Q2WK
     Route: 065
  4. AMJEVITA [Suspect]
     Active Substance: ADALIMUMAB-ATTO
     Dosage: 40 MILLIGRAM/0.4ML, Q2WK
     Route: 065
  5. AMJEVITA [Suspect]
     Active Substance: ADALIMUMAB-ATTO
     Dosage: 40 MILLIGRAM/0.8ML, Q2WK
     Route: 065
  6. AMJEVITA [Suspect]
     Active Substance: ADALIMUMAB-ATTO
     Dosage: UNK, Q2WK
     Route: 065

REACTIONS (7)
  - Accidental exposure to product [Unknown]
  - Device difficult to use [Unknown]
  - Drug dose omission by device [Unknown]
  - Injection site pain [Recovered/Resolved]
  - Injection site irritation [Recovered/Resolved]
  - Scar [Recovered/Resolved]
  - Injection site erythema [Recovered/Resolved]

NARRATIVE: CASE EVENT DATE: 20240101
